FAERS Safety Report 17550762 (Version 1)
Quarter: 2020Q1

REPORT INFORMATION
  Report Type: Report from Study
  Country: BR (occurrence: BR)
  Receive Date: 20200317
  Receipt Date: 20200317
  Transmission Date: 20200409
  Serious: Yes (Hospitalization, Other)
  Sender: FDA-Public Use
  Company Number: BR-UCBSA-2019044953

PATIENT
  Age: 55 Year
  Sex: Female
  Weight: 49 kg

DRUGS (2)
  1. AZATIOPRINA [AZATHIOPRINE] [Concomitant]
     Active Substance: AZATHIOPRINE
     Indication: CROHN^S DISEASE
     Dosage: 50MG?2 TABLETS A DAY
     Route: 048
  2. CERTOLIZUMAB PEGOL CD [Suspect]
     Active Substance: CERTOLIZUMAB PEGOL
     Indication: CROHN^S DISEASE
     Dosage: 200 MILLIGRAM, EV 15 DAYS
     Route: 058
     Dates: start: 201810, end: 201908

REACTIONS (2)
  - Inappropriate schedule of product administration [Unknown]
  - Intestinal operation [Unknown]

NARRATIVE: CASE EVENT DATE: 201810
